FAERS Safety Report 22049317 (Version 1)
Quarter: 2023Q1

REPORT INFORMATION
  Report Type: Spontaneous
  Country: JP (occurrence: JP)
  Receive Date: 20230301
  Receipt Date: 20230301
  Transmission Date: 20230417
  Serious: Yes (Other)
  Sender: FDA-Public Use
  Company Number: JP-OTSUKA-2023_005181

PATIENT
  Sex: Female

DRUGS (2)
  1. REXULTI [Suspect]
     Active Substance: BREXPIPRAZOLE
     Indication: Schizophrenia
     Dosage: 2MG, FREQUENCY UNKNOWN
     Route: 065
  2. REXULTI [Suspect]
     Active Substance: BREXPIPRAZOLE
     Dosage: 1MG, FREQUENCY UNKNOWN
     Route: 065

REACTIONS (5)
  - Oculogyric crisis [Recovering/Resolving]
  - Hallucination, auditory [Unknown]
  - Hypoaesthesia [Recovering/Resolving]
  - Muscle rigidity [Recovering/Resolving]
  - Somnolence [Recovering/Resolving]
